FAERS Safety Report 22333133 (Version 16)
Quarter: 2025Q4

REPORT INFORMATION
  Report Type: Spontaneous
  Country: US (occurrence: US)
  Receive Date: 20230517
  Receipt Date: 20251202
  Transmission Date: 20260117
  Serious: No
  Sender: PFIZER
  Company Number: US-PFIZER INC-PV202300085141

PATIENT
  Age: 72 Year
  Sex: Female
  Weight: 81.633 kg

DRUGS (7)
  1. IBRANCE [Suspect]
     Active Substance: PALBOCICLIB
     Indication: Breast cancer female
     Dosage: 125 MG, CYCLIC (DAILY FOR 21 DAYS, FOLLOWED BY 7 DAYS OFF)
     Route: 048
     Dates: start: 20220923
  2. IBRANCE [Suspect]
     Active Substance: PALBOCICLIB
     Indication: Breast cancer metastatic
     Dosage: 125 MG, 1X/DAY
     Route: 048
     Dates: start: 202210
  3. IBRANCE [Suspect]
     Active Substance: PALBOCICLIB
     Indication: Throat cancer
     Dosage: 125 MG, CYCLIC (TAKE ON DAYS 1 THROUGH 21 (FOLLOWED BY 7 DAYS OFF TREATMENT) WITH FOOD
     Route: 048
  4. IBRANCE [Suspect]
     Active Substance: PALBOCICLIB
     Dosage: 125 MG
     Route: 048
  5. IBRANCE [Suspect]
     Active Substance: PALBOCICLIB
     Dosage: 125 MG
     Route: 048
  6. LETROZOLE [Concomitant]
     Active Substance: LETROZOLE
     Indication: Breast cancer female
     Dosage: UNK
     Dates: start: 20220923
  7. LETROZOLE [Concomitant]
     Active Substance: LETROZOLE
     Indication: Breast cancer metastatic
     Dosage: UNK
     Dates: start: 202210

REACTIONS (3)
  - Dysphagia [Recovered/Resolved]
  - Osteopenia [Unknown]
  - Malaise [Unknown]

NARRATIVE: CASE EVENT DATE: 20230101
